FAERS Safety Report 20519901 (Version 2)
Quarter: 2022Q1

REPORT INFORMATION
  Report Type: Report from Study
  Country: TW (occurrence: TW)
  Receive Date: 20220225
  Receipt Date: 20220307
  Transmission Date: 20220423
  Serious: Yes (Death)
  Sender: FDA-Public Use
  Company Number: TW-KARYOPHARM-2022KPT000216

PATIENT
  Age: 80 Year
  Sex: Male
  Weight: 53 kg

DRUGS (4)
  1. SELINEXOR [Suspect]
     Active Substance: SELINEXOR
     Indication: Diffuse large B-cell lymphoma
     Dosage: 20 MG, 2X/WEEK
     Route: 048
     Dates: start: 20211209, end: 20220117
  2. TAMSULOSIN [Concomitant]
     Active Substance: TAMSULOSIN
     Dosage: 1 DOSAGE FORM, QD
  3. AMLODIPINE [Concomitant]
     Active Substance: AMLODIPINE BESYLATE
     Dosage: 1 DOSAGE FORM, QD
  4. ENTECAVIR [Concomitant]
     Active Substance: ENTECAVIR
     Dosage: 1 DOSAGE FORM, QD

REACTIONS (1)
  - Diffuse large B-cell lymphoma refractory [Fatal]
